FAERS Safety Report 4289288-8 (Version None)
Quarter: 2004Q1

REPORT INFORMATION
  Report Type: 
  Country: None (occurrence: None)
  Receive Date: 20040209
  Receipt Date: 20040209
  Transmission Date: 20041129
  Serious: Yes (Hospitalization)
  Sender: FDA-Public Use
  Company Number: None

PATIENT
  Age: 62 Year
  Sex: Female
  Weight: 67 kg

DRUGS (2)
  1. PARAPLATIN [Suspect]
     Indication: BREAST CANCER METASTATIC
     Dosage: 300 MG Q 2 WEEKS
     Dates: start: 20030908, end: 20040120
  2. PARAPLATIN [Suspect]
     Indication: PLEURAL EFFUSION
     Dosage: 300 MG Q 2 WEEKS
     Dates: start: 20030908, end: 20040120

REACTIONS (1)
  - ANAPHYLACTIC REACTION [None]
